FAERS Safety Report 10922322 (Version 2)
Quarter: 2015Q2

REPORT INFORMATION
  Report Type: Spontaneous
  Country: CN (occurrence: CN)
  Receive Date: 20150317
  Receipt Date: 20150402
  Transmission Date: 20150821
  Serious: Yes (Hospitalization, Other)
  Sender: FDA-Public Use
  Company Number: CN-ELI_LILLY_AND_COMPANY-CN201503002788

PATIENT
  Age: 60 Year
  Sex: Female

DRUGS (3)
  1. HUMALOG MIX50/50 [Suspect]
     Active Substance: INSULIN LISPRO
     Dosage: 16 DF, EACH EVENING
     Route: 058
     Dates: start: 201212
  2. ACARBOSE. [Concomitant]
     Active Substance: ACARBOSE
     Indication: BLOOD GLUCOSE INCREASED
     Dosage: 1 DF, TID
     Route: 048
     Dates: start: 201501
  3. HUMALOG MIX50/50 [Suspect]
     Active Substance: INSULIN LISPRO
     Indication: DIABETES MELLITUS
     Dosage: 18 DF, EACH MORNING
     Route: 058
     Dates: start: 201212

REACTIONS (1)
  - Aortic occlusion [Not Recovered/Not Resolved]
